FAERS Safety Report 17098235 (Version 57)
Quarter: 2025Q1

REPORT INFORMATION
  Report Type: Spontaneous
  Country: US (occurrence: US)
  Receive Date: 20191202
  Receipt Date: 20250304
  Transmission Date: 20250408
  Serious: Yes (Other)
  Sender: PFIZER
  Company Number: US-PFIZER INC-2019508379

PATIENT
  Age: 70 Year
  Sex: Female

DRUGS (6)
  1. EUCRISA [Suspect]
     Active Substance: CRISABOROLE
     Indication: Dermatitis atopic
     Dosage: UNK, 2X/DAY, APPLY TO TRUNK/ARM/LEGS
     Route: 061
  2. EUCRISA [Suspect]
     Active Substance: CRISABOROLE
     Indication: Urticaria chronic
     Route: 061
  3. EUCRISA [Suspect]
     Active Substance: CRISABOROLE
     Indication: Urticaria
     Route: 061
  4. EUCRISA [Suspect]
     Active Substance: CRISABOROLE
     Indication: Condition aggravated
     Route: 061
  5. EUCRISA [Suspect]
     Active Substance: CRISABOROLE
     Dates: start: 20200101
  6. ALPRAZOLAM [Concomitant]
     Active Substance: ALPRAZOLAM
     Indication: Insomnia

REACTIONS (32)
  - Skin cancer [Not Recovered/Not Resolved]
  - Accident [Unknown]
  - Road traffic accident [Unknown]
  - Drug ineffective [Unknown]
  - Product dispensing error [Unknown]
  - Expired product administered [Unknown]
  - Condition aggravated [Unknown]
  - Insomnia [Not Recovered/Not Resolved]
  - Multiple allergies [Unknown]
  - Disease recurrence [Unknown]
  - Stress [Not Recovered/Not Resolved]
  - Malaise [Not Recovered/Not Resolved]
  - Anxiety [Unknown]
  - Headache [Not Recovered/Not Resolved]
  - Oropharyngeal pain [Not Recovered/Not Resolved]
  - Nervousness [Unknown]
  - Urticaria [Recovering/Resolving]
  - Erythema [Recovering/Resolving]
  - Rash macular [Unknown]
  - Rash pruritic [Unknown]
  - Rash [Unknown]
  - Fibromyalgia [Unknown]
  - Fall [Unknown]
  - Confusional state [Not Recovered/Not Resolved]
  - Pruritus [Unknown]
  - Injury [Unknown]
  - Memory impairment [Unknown]
  - Pigmentation disorder [Unknown]
  - COVID-19 [Unknown]
  - Nasal congestion [Unknown]
  - Asthenia [Unknown]
  - Movement disorder [Unknown]

NARRATIVE: CASE EVENT DATE: 20160101
